FAERS Safety Report 5555271-5 (Version None)
Quarter: 2007Q4

REPORT INFORMATION
  Report Type: 
  Country: None (occurrence: None)
  Receive Date: 20071213
  Receipt Date: 20070813
  Transmission Date: 20080405
  Serious: No
  Sender: FDA-Public Use
  Company Number: US-AMGEN-KDL238468

PATIENT
  Sex: Female

DRUGS (2)
  1. ENBREL [Suspect]
     Indication: RHEUMATOID ARTHRITIS
     Route: 058
     Dates: start: 20000601
  2. PLAQUENIL [Concomitant]
     Dates: start: 20070801

REACTIONS (5)
  - INSOMNIA [None]
  - ORAL DISCOMFORT [None]
  - ORAL DISORDER [None]
  - PHARYNGOLARYNGEAL PAIN [None]
  - RHEUMATOID ARTHRITIS [None]
